FAERS Safety Report 24676614 (Version 2)
Quarter: 2024Q4

REPORT INFORMATION
  Report Type: Report from Study
  Country: JP (occurrence: JP)
  Receive Date: 20241128
  Receipt Date: 20241206
  Transmission Date: 20250114
  Serious: Yes (Hospitalization, Other)
  Sender: ALEXION PHARMACEUTICALS
  Company Number: JP-ASTRAZENECA-240049974_032420_P_1

PATIENT
  Age: 42 Year
  Weight: 72 kg

DRUGS (4)
  1. TEZEPELUMAB [Suspect]
     Active Substance: TEZEPELUMAB
     Indication: Asthma
     Dosage: DOSE UNKNOWN
  2. TEZEPELUMAB [Suspect]
     Active Substance: TEZEPELUMAB
     Dosage: DOSE UNKNOWN
  3. TEZEPELUMAB [Suspect]
     Active Substance: TEZEPELUMAB
     Dosage: DOSE UNKNOWN
  4. TEZEPELUMAB [Suspect]
     Active Substance: TEZEPELUMAB
     Dosage: DOSE UNKNOWN

REACTIONS (3)
  - Nasopharyngitis [Unknown]
  - Hypertensive emergency [Unknown]
  - Exposure during pregnancy [Unknown]
